FAERS Safety Report 8444466-9 (Version None)
Quarter: 2012Q2

REPORT INFORMATION
  Report Type: 
  Country: None (occurrence: None)
  Receive Date: 20120618
  Receipt Date: 20120613
  Transmission Date: 20120825
  Serious: Yes (Other)
  Sender: FDA-Public Use
  Company Number: BR-PFIZER INC-2012143205

PATIENT
  Sex: Female

DRUGS (3)
  1. VARENICLINE TARTRATE [Suspect]
     Indication: SMOKING CESSATION THERAPY
     Dosage: UNK
     Route: 048
     Dates: start: 20090101
  2. CLONAZEPAM [Concomitant]
     Indication: IRRITABILITY
     Dosage: 0.5 MG, 3X/DAY
     Dates: start: 20090101
  3. VARENICLINE TARTRATE [Suspect]
     Dosage: 1 TABLET (UNSPECIFIED DOSE), 2X/DAY
     Route: 048

REACTIONS (2)
  - POISONING [None]
  - HEADACHE [None]
